FAERS Safety Report 7774853-3 (Version None)
Quarter: 2011Q3

REPORT INFORMATION
  Report Type: 
  Country: None (occurrence: None)
  Receive Date: 20110920
  Receipt Date: 20110913
  Transmission Date: 20111222
  Serious: Yes (Other)
  Sender: FDA-Public Use
  Company Number: WAES 1109USA01202

PATIENT
  Age: 69 Year
  Sex: Female
  Weight: 53.0709 kg

DRUGS (6)
  1. DIAZEPAM [Concomitant]
  2. HYDROCHLOROTHIAZIDE [Concomitant]
  3. LEVOTHYROXINE SODIUM [Concomitant]
  4. ZOLOFT [Suspect]
     Indication: ANXIETY
     Dates: start: 19950101
  5. PRINIVIL [Suspect]
     Indication: HYPERTENSION
     Dosage: PO
     Route: 048
     Dates: start: 20060101, end: 20060101
  6. PRINIVIL [Suspect]
     Indication: STRESS
     Dosage: PO
     Route: 048
     Dates: start: 20060101, end: 20060101

REACTIONS (5)
  - PHARYNGEAL OEDEMA [None]
  - GLAUCOMA [None]
  - SWELLING FACE [None]
  - SWOLLEN TONGUE [None]
  - DYSPNOEA [None]
